FAERS Safety Report 14535258 (Version 2)
Quarter: 2018Q3

REPORT INFORMATION
  Report Type: Spontaneous
  Country: DE (occurrence: DE)
  Receive Date: 20180215
  Receipt Date: 20180808
  Transmission Date: 20181010
  Serious: Yes (Other)
  Sender: FDA-Public Use
  Company Number: DE-PFIZER INC-2018064494

PATIENT
  Age: 59 Year
  Sex: Male

DRUGS (2)
  1. CISPLATIN. [Suspect]
     Active Substance: CISPLATIN
     Indication: COLON CANCER
     Dosage: 50 MG, CYCLIC (50 MG/D (MILLIGRAMS PER DAY) ONCE A WEEK IN A 21 DAY CYCLE)
     Route: 042
  2. GEMCITABINE HYDROCHLORIDE. [Suspect]
     Active Substance: GEMCITABINE HYDROCHLORIDE
     Indication: COLON CANCER
     Dosage: 2000 MG, CYCLIC (2000 MG/D (MILLIGRAM PER DAY)ONCE A WEEK IN A 21 DAY CYCLE) (INFUSION)
     Route: 042

REACTIONS (3)
  - Urticaria [Unknown]
  - Product use in unapproved indication [Unknown]
  - Hypersensitivity [Unknown]

NARRATIVE: CASE EVENT DATE: 20180111
